FAERS Safety Report 13377080 (Version 3)
Quarter: 2018Q1

REPORT INFORMATION
  Report Type: Report from Study
  Country: CA (occurrence: CA)
  Receive Date: 20170328
  Receipt Date: 20180219
  Transmission Date: 20180508
  Serious: Yes (Other)
  Sender: FDA-Public Use
  Company Number: CA-UCBSA-2017011220

PATIENT
  Age: 70 Year
  Sex: Male
  Weight: 141 kg

DRUGS (7)
  1. XANAX [Concomitant]
     Active Substance: ALPRAZOLAM
     Indication: ANXIETY
     Dosage: 0.5 MG, ONCE DAILY (QD)
     Route: 048
     Dates: start: 20141124
  2. CERTOLIZUMAB PEGOL [Suspect]
     Active Substance: CERTOLIZUMAB PEGOL
     Indication: PSORIASIS
     Dosage: 200 MG, EV 2 WEEKS(QOW)
     Route: 058
     Dates: start: 20160906, end: 20170307
  3. IRBESARTAN HYDROCHLOROTHIAZIDE [Concomitant]
     Active Substance: HYDROCHLOROTHIAZIDE\IRBESARTAN
     Indication: HYPERTENSION
     Dosage: 150/125 MG ONCE DAILY
     Route: 048
     Dates: start: 20141124
  4. HYDROCORTISONE. [Concomitant]
     Active Substance: HYDROCORTISONE
     Indication: DYSHIDROTIC ECZEMA
     Dosage: UNK
     Dates: start: 20161128
  5. ROSUVASTATIN. [Concomitant]
     Active Substance: ROSUVASTATIN
     Indication: HYPERLIPIDAEMIA
     Dosage: 10 MG, ONCE DAILY (QD)
     Route: 048
     Dates: start: 20141124
  6. NAPROXEN. [Concomitant]
     Active Substance: NAPROXEN
     Indication: MUSCULOSKELETAL PAIN
     Dosage: 220 MG, ONCE DAILY (QD)
     Route: 048
     Dates: start: 2013
  7. COD LIVER OIL [Concomitant]
     Active Substance: COD LIVER OIL
     Indication: PROPHYLAXIS
     Dosage: 1 DF, ONCE DAILY (QD)
     Route: 048
     Dates: start: 2010

REACTIONS (1)
  - Prostate cancer [Not Recovered/Not Resolved]

NARRATIVE: CASE EVENT DATE: 201611
